FAERS Safety Report 4370426-3 (Version None)
Quarter: 2004Q2

REPORT INFORMATION
  Report Type: 
  Country: None (occurrence: None)
  Receive Date: 20040603
  Receipt Date: 20040209
  Transmission Date: 20050107
  Serious: Yes (Other)
  Sender: FDA-Public Use
  Company Number: US-BRISTOL-MYERS SQUIBB COMPANY-12500062

PATIENT
  Age: 13 Year
  Sex: Male

DRUGS (7)
  1. ABILIFY [Suspect]
     Indication: HALLUCINATIONS, MIXED
     Route: 048
     Dates: start: 20040130, end: 20040201
  2. ABILIFY [Suspect]
     Indication: MOOD SWINGS
     Route: 048
     Dates: start: 20040130, end: 20040201
  3. ABILIFY [Suspect]
     Indication: SCHIZOAFFECTIVE DISORDER
     Route: 048
     Dates: start: 20040130, end: 20040201
  4. ABILIFY [Suspect]
     Indication: BIPOLAR DISORDER
     Route: 048
     Dates: start: 20040130, end: 20040201
  5. CLONIDINE HCL [Concomitant]
  6. DEPAKOTE [Concomitant]
  7. CELEXA [Concomitant]
     Dosage: 40 MG/DAY REDUCED TO 20 MG/DAY ON 27-JAN-04

REACTIONS (3)
  - BODY TEMPERATURE INCREASED [None]
  - NEUROLEPTIC MALIGNANT SYNDROME [None]
  - TREMOR [None]
